FAERS Safety Report 11699901 (Version 2)
Quarter: 2015Q4

REPORT INFORMATION
  Report Type: Spontaneous
  Country: US (occurrence: US)
  Receive Date: 20151105
  Receipt Date: 20151119
  Transmission Date: 20160304
  Serious: Yes (Other)
  Sender: FDA-Public Use
  Company Number: US-BEH-2015055402

PATIENT
  Sex: Female
  Weight: 87 kg

DRUGS (21)
  1. LMX [Concomitant]
     Active Substance: LIDOCAINE
  2. SPIRIVA [Concomitant]
     Active Substance: TIOTROPIUM BROMIDE MONOHYDRATE
  3. CENTRUM SILVER ULTRA WOMEN VITAMIN [Concomitant]
  4. OXYGEN. [Concomitant]
     Active Substance: OXYGEN
  5. CLARITIN [Concomitant]
     Active Substance: LORATADINE
  6. FIBER THERAPY [Concomitant]
     Active Substance: METHYLCELLULOSE (4000 MPA.S)
  7. ADVAIR HFA [Concomitant]
     Active Substance: FLUTICASONE PROPIONATE\SALMETEROL XINAFOATE
  8. CALCIUM D [Concomitant]
     Active Substance: CALCIUM\VITAMIN D
  9. DIPHENHYDRAMINE. [Concomitant]
     Active Substance: DIPHENHYDRAMINE
  10. SODIUM CHLORIDE. [Concomitant]
     Active Substance: SODIUM CHLORIDE
  11. ZEMAIRA [Suspect]
     Active Substance: .ALPHA.1-PROTEINASE INHIBITOR HUMAN
     Indication: ALPHA-1 ANTI-TRYPSIN DEFICIENCY
     Dosage: 970 MG/VL; ??-???-2008
     Route: 042
  12. MILK THISTLE [Concomitant]
     Active Substance: MILK THISTLE
  13. PREDNISONE. [Concomitant]
     Active Substance: PREDNISONE
  14. NORMAL SALINE [Concomitant]
     Active Substance: SODIUM CHLORIDE
  15. PROAIR HFA [Concomitant]
     Active Substance: ALBUTEROL SULFATE
  16. ZITHROMAX [Concomitant]
     Active Substance: AZITHROMYCIN DIHYDRATE
  17. EPIPEN [Concomitant]
     Active Substance: EPINEPHRINE
  18. OCUVITE [Concomitant]
     Active Substance: VITAMINS
  19. ASPIRIN. [Concomitant]
     Active Substance: ASPIRIN
  20. LIDOCAINE/PRILOCAINE [Concomitant]
  21. OMEGA-3 FISH OIL [Concomitant]
     Active Substance: FISH OIL\OMEGA-3 FATTY ACIDS

REACTIONS (1)
  - Respiratory tract infection [Recovering/Resolving]
